FAERS Safety Report 9937521 (Version 2)
Quarter: 2014Q1

REPORT INFORMATION
  Report Type: Report from Study
  Country: JP (occurrence: JP)
  Receive Date: 20140303
  Receipt Date: 20140311
  Transmission Date: 20141002
  Serious: Yes (Hospitalization)
  Sender: FDA-Public Use
  Company Number: JP-PFIZER INC-2014057306

PATIENT
  Age: 57 Year
  Sex: Female
  Weight: 51 kg

DRUGS (7)
  1. XALKORI [Suspect]
     Indication: NON-SMALL CELL LUNG CANCER
     Dosage: 250 MG, 2X/DAY
     Route: 048
     Dates: start: 20130129, end: 20130303
  2. RINDERON [Concomitant]
     Dosage: 0.5 MG, 2X/DAY
     Route: 048
     Dates: start: 20130129, end: 20130218
  3. RINDERON [Concomitant]
     Dosage: 0.5 MG, 1X/DAY
     Route: 048
     Dates: start: 20130219, end: 20130303
  4. GASTER [Concomitant]
     Dosage: 10 MG, 2X/DAY
     Route: 048
     Dates: start: 20130129, end: 20130422
  5. NORVASC [Concomitant]
     Dosage: 2.5 MG, 1X/DAY
     Route: 048
     Dates: start: 20130129, end: 20130303
  6. EQUA [Concomitant]
     Dosage: 50 MG, 2X/DAY
     Route: 048
     Dates: start: 20130129, end: 20130321
  7. METGLUCO [Concomitant]
     Dosage: 250 MG, 2X/DAY
     Route: 048
     Dates: start: 20130219, end: 20130321

REACTIONS (2)
  - Vomiting [Recovered/Resolved]
  - Erythema multiforme [Recovered/Resolved]
